FAERS Safety Report 24753744 (Version 4)
Quarter: 2025Q2

REPORT INFORMATION
  Report Type: Report from Study
  Country: US (occurrence: US)
  Receive Date: 20241219
  Receipt Date: 20250621
  Transmission Date: 20250716
  Serious: Yes (Other)
  Sender: UCB
  Company Number: US-UCBSA-2024065663

PATIENT
  Age: 14 Year
  Sex: Male
  Weight: 38.8 kg

DRUGS (9)
  1. FINTEPLA [Suspect]
     Active Substance: FENFLURAMINE
     Indication: Lennox-Gastaut syndrome
     Dosage: 3 MILLILITER, 2X/DAY (BID) (6.6 MG/DAY)
     Dates: start: 20240722
  2. FINTEPLA [Suspect]
     Active Substance: FENFLURAMINE
     Indication: Epilepsy
  3. FINTEPLA [Suspect]
     Active Substance: FENFLURAMINE
     Indication: Severe myoclonic epilepsy of infancy
  4. PHENOBARBITAL [Concomitant]
     Active Substance: PHENOBARBITAL
     Indication: Epilepsy
  5. PHENOBARBITAL [Concomitant]
     Active Substance: PHENOBARBITAL
     Indication: Severe myoclonic epilepsy of infancy
  6. FYCOMPA [Concomitant]
     Active Substance: PERAMPANEL
     Indication: Epilepsy
  7. FYCOMPA [Concomitant]
     Active Substance: PERAMPANEL
     Indication: Severe myoclonic epilepsy of infancy
  8. DIAZEPAM [Concomitant]
     Active Substance: DIAZEPAM
     Indication: Epilepsy
     Dosage: 5 MILLIGRAM, 3X/DAY (TID)
  9. DIAZEPAM [Concomitant]
     Active Substance: DIAZEPAM
     Indication: Severe myoclonic epilepsy of infancy

REACTIONS (1)
  - Aortic valve incompetence [Recovered/Resolved]

NARRATIVE: CASE EVENT DATE: 20241209
